FAERS Safety Report 25723646 (Version 1)
Quarter: 2025Q3

REPORT INFORMATION
  Report Type: Spontaneous
  Country: US (occurrence: US)
  Receive Date: 20250825
  Receipt Date: 20250825
  Transmission Date: 20251021
  Serious: Yes (Other)
  Sender: ADMA BIOLOGICS
  Company Number: US-ADMA BIOLOGICS INC.-US-2025ADM000240

PATIENT
  Sex: Female

DRUGS (2)
  1. ASCENIV [Suspect]
     Active Substance: HUMAN IMMUNOGLOBULIN G
     Indication: Product used for unknown indication
     Route: 042
  2. IBUPROFEN [Concomitant]
     Active Substance: IBUPROFEN
     Indication: Product used for unknown indication
     Route: 065

REACTIONS (9)
  - Swelling face [Unknown]
  - Dysphagia [Unknown]
  - Dyspepsia [Unknown]
  - Hypoaesthesia oral [Unknown]
  - Cough [Unknown]
  - Dyskinesia [Unknown]
  - Lip swelling [Unknown]
  - Oral disorder [Unknown]
  - Pruritus [Unknown]
